FAERS Safety Report 14365409 (Version 3)
Quarter: 2018Q1

REPORT INFORMATION
  Report Type: Spontaneous
  Country: US (occurrence: US)
  Receive Date: 20180108
  Receipt Date: 20180130
  Transmission Date: 20180509
  Serious: Yes (Hospitalization, Other)
  Sender: FDA-Public Use
  Company Number: US-BIOGEN-2018BI00506439

PATIENT
  Age: 15 Year
  Sex: Female
  Weight: 35 kg

DRUGS (27)
  1. ROXICODONE [Concomitant]
     Active Substance: OXYCODONE HYDROCHLORIDE
     Indication: PRODUCT USED FOR UNKNOWN INDICATION
     Dosage: EVERY 4 HOURS AS NEEDED FOR MODERATE PAIN (4-6) SEVERE PAIN (7-10)
     Route: 048
     Dates: start: 20180118
  2. POTASSIUM CHLORIDE. [Concomitant]
     Active Substance: POTASSIUM CHLORIDE
     Indication: PRODUCT USED FOR UNKNOWN INDICATION
     Dosage: AS DIRECTED FOR AS NEEDED FOR POTASSIUM 2.5-2.9 AT 21.9ML/HR OVER 2 HOURS
     Route: 042
     Dates: start: 20171231
  3. POTASSIUM CHLORIDE. [Concomitant]
     Active Substance: POTASSIUM CHLORIDE
     Dosage: AS DIRECTED FOR AS NEEDED FOR POTASSIUM 3-3.4 AT 21.9ML/HR OVER 2 HOURS?0.5 MEQ/KG X 35 KG (DOSIN...
     Route: 042
     Dates: start: 20171231
  4. LASIX [Concomitant]
     Active Substance: FUROSEMIDE
     Indication: PRODUCT USED FOR UNKNOWN INDICATION
     Dosage: EVERY 12 HOURS FROM 22 JAN 2018 TO 20 FEB 2018 AFTER 55 DOSES
     Route: 048
     Dates: start: 20180122
  5. MELATONIN [Concomitant]
     Active Substance: MELATONIN
     Indication: PRODUCT USED FOR UNKNOWN INDICATION
     Dosage: 1MG/ML SOLUTION, 3MG ORAL OR VIA TUBE NIGHTLY
     Route: 065
     Dates: start: 20180107
  6. SODIUM CHLORIDE. [Concomitant]
     Active Substance: SODIUM CHLORIDE
     Dosage: 0.9% WITH HEPARIN 250 UNITS IN 250 ML INFUSION, CONTINOUS INFUSION AT 1ML/HR
     Route: 042
     Dates: start: 20180115
  7. SPINRAZA [Suspect]
     Active Substance: NUSINERSEN
     Indication: SPINAL MUSCULAR ATROPHY
     Dosage: LOADING DOSES: FIRST 3 LOADING DOSES EVERY 14 DAYS; 4TH LOADING DOSE ONCE AFTER 30 DAYS.?MAINTENA...
     Route: 037
     Dates: start: 20171113, end: 20180119
  8. TYLENOL [Concomitant]
     Active Substance: ACETAMINOPHEN
     Indication: PRODUCT USED FOR UNKNOWN INDICATION
     Dosage: 160MG/5ML, 524.8 MG (ORAL/VIA TUBE)?15MG/KGX 35KG (DOSING WEIGHT)
     Route: 048
     Dates: start: 20180113
  9. PROVENTIL [Concomitant]
     Active Substance: ALBUTEROL
     Indication: PRODUCT USED FOR UNKNOWN INDICATION
     Dosage: EVERY 4 HOURS AS NEEDED FOR WHEEZING AND BRONCHOSPASMS
     Route: 065
     Dates: start: 20180101
  10. MYCOSTATIN [Concomitant]
     Active Substance: NYSTATIN
     Indication: PRODUCT USED FOR UNKNOWN INDICATION
     Route: 061
     Dates: start: 20180118
  11. ILEX SKIN PROTECTANT [Concomitant]
     Indication: PRODUCT USED FOR UNKNOWN INDICATION
     Dosage: 4 TIMES DAILY AS NEEDED FOR SKIN IRRITATION
     Route: 061
     Dates: start: 20180117
  12. CALCIUM GLUCONATE. [Concomitant]
     Active Substance: CALCIUM GLUCONATE
     Indication: PRODUCT USED FOR UNKNOWN INDICATION
     Dosage: (10%) 100MG/ML, 1050 MG ?30MG/KG X 35 KG DOSING  WEIGHT AS DIRECTED AS NEEDED FOR ICA OF {1.1
     Route: 042
     Dates: start: 20171231
  13. TRANSDERM SCOP [Concomitant]
     Active Substance: SCOPOLAMINE
     Dosage: 1 MG PATCH, EVERY 72 HOURS OVER 3 DAYS AFTER 1 DOSE
     Route: 062
     Dates: start: 20180120, end: 20180122
  14. SILVADENE [Concomitant]
     Active Substance: SILVER SULFADIAZINE
     Indication: PRODUCT USED FOR UNKNOWN INDICATION
     Dosage: 1% CREAM
     Route: 061
     Dates: start: 20180119
  15. TRANSDERM SCOP [Concomitant]
     Active Substance: SCOPOLAMINE
     Indication: PRODUCT USED FOR UNKNOWN INDICATION
     Dosage: OVER 3 DAYS, COVER 1/2 OF PATCH WITH OCCLUSIVE DRESSING (SUCH AS TEGADERM) DOSE = 12 PATCH?EVERY ...
     Route: 065
  16. SODIUM CHLORIDE. [Concomitant]
     Active Substance: SODIUM CHLORIDE
     Indication: PRODUCT USED FOR UNKNOWN INDICATION
     Dosage: 0.9% WITH HEPARIN 250 UNITS IN 250 ML INFUSION, CONTINOUS INFUSION AT 1ML/HR
     Route: 042
     Dates: start: 20180101
  17. SODIUM CHLORIDE. [Concomitant]
     Active Substance: SODIUM CHLORIDE
     Dosage: 4 MEQS/ML, EVERY 6 HOURS,  FROM 22 JAN 2018 TO 23 JAN 2018 AFTER 4 DOSES
     Route: 048
     Dates: start: 20180122
  18. VERSED [Concomitant]
     Active Substance: MIDAZOLAM HYDROCHLORIDE
     Indication: ANXIETY
     Dosage: 1MG/ML INJECTION 1.5 MG INTRAVENOUS EVERY 4 HOURS PRN FOR ANXIETY
     Route: 042
     Dates: start: 20180109
  19. PRILOSEC [Concomitant]
     Active Substance: OMEPRAZOLE MAGNESIUM
     Indication: PRODUCT USED FOR UNKNOWN INDICATION
     Dosage: 2MG/ML, ORAL OR VIA TUBE UNTIL 80 DOSES
     Route: 065
     Dates: start: 20180121
  20. HEPARIN [Concomitant]
     Active Substance: HEPARIN SODIUM
     Dosage: HEPARIN 250 UNITS IN 250 ML INFUSION WITH 0.9% SODIUM CHLORIDE, CONTINOUS INFUSION AT 1ML/HR
     Route: 042
     Dates: start: 20180115
  21. COLONEL^S BUTTOCKS OINTMENT [Concomitant]
     Indication: PRODUCT USED FOR UNKNOWN INDICATION
     Dosage: 4 TIMES DAILY AS NEEDED FOR REDNESS AND IRRITATION
     Route: 065
     Dates: start: 20180102
  22. ARGININE [Concomitant]
     Active Substance: ARGININE
     Indication: PRODUCT USED FOR UNKNOWN INDICATION
     Dosage: 20 MEQ VIA TUBE EVERY 6 HOURS FROM 22 JAN 2018 TO 23 JAN 2018 AFTER 4 DOSES
     Route: 065
     Dates: start: 20180122
  23. GLYCERIN. [Concomitant]
     Active Substance: GLYCERIN
     Indication: PRODUCT USED FOR UNKNOWN INDICATION
     Dosage: 99.5% TOPICAL SOLUTION TWICE DAILY AS NEEDED FOR PROVIDE IF NO STOOLS IN 7 DAYS
     Route: 061
     Dates: start: 20180118
  24. MAGNESIUM SULFATE. [Concomitant]
     Active Substance: MAGNESIUM SULFATE
     Indication: PRODUCT USED FOR UNKNOWN INDICATION
     Dosage: 200MG/ML INTRAVENOUS SYRINGE 1,750 MG AS DIRECTED AS NEEDED FOR MG {1.8 AT 8.75 ML/HR OVER ONE HOUR
     Route: 042
     Dates: start: 20171231
  25. HEPARIN [Concomitant]
     Active Substance: HEPARIN SODIUM
     Indication: PRODUCT USED FOR UNKNOWN INDICATION
     Dosage: HEPARIN 250 UNITS IN 250 ML INFUSION WITH 0.9% SODIUM CHLORIDE, CONTINOUS INFUSION AT 1ML/HR
     Route: 042
     Dates: start: 20180101
  26. AQUAPHOR WITH NATURAL HEALING [Concomitant]
     Indication: PRODUCT USED FOR UNKNOWN INDICATION
     Dosage: 41%, 4 TIMES A DAY AS NEEDED FOR DRY SKIN
     Route: 061
     Dates: start: 20180101
  27. WHITE PETROLATUM JELLY [Concomitant]
     Indication: PRODUCT USED FOR UNKNOWN INDICATION
     Dosage: 4 TIMES DAILY AS NEEDED FOR DRY SKIN
     Route: 061
     Dates: start: 20180117

REACTIONS (17)
  - Staphylococcal sepsis [Not Recovered/Not Resolved]
  - Pneumococcal sepsis [Not Recovered/Not Resolved]
  - Cardiac failure [Unknown]
  - Constipation [Recovered/Resolved]
  - Aphonia [Unknown]
  - Nephrolithiasis [Unknown]
  - Hypoxic-ischaemic encephalopathy [Unknown]
  - Ascites [Recovered/Resolved]
  - Systemic candida [Not Recovered/Not Resolved]
  - Respiratory failure [Not Recovered/Not Resolved]
  - Acute respiratory distress syndrome [Unknown]
  - Cardiac arrest [Recovered/Resolved]
  - Anaemia [Unknown]
  - Malnutrition [Unknown]
  - Influenza [Not Recovered/Not Resolved]
  - Gastrointestinal haemorrhage [Unknown]
  - Adenovirus infection [Unknown]

NARRATIVE: CASE EVENT DATE: 20171215
